FAERS Safety Report 13655128 (Version 1)
Quarter: 2017Q2

REPORT INFORMATION
  Report Type: Spontaneous
  Country: None (occurrence: US)
  Receive Date: 20170614
  Receipt Date: 20170614
  Transmission Date: 20170830
  Serious: No
  Sender: FDA-Public Use
  Company Number: None

PATIENT
  Age: 30 Year
  Sex: Male

DRUGS (2)
  1. RECOMBINATE [Suspect]
     Active Substance: ANTIHEMOPHILIC FACTOR, HUMAN RECOMBINANT
     Indication: COAGULATION FACTOR VIII LEVEL DECREASED
     Dosage: 2220 UNITS 2-3X/WEEK AND Q12H PRN INTRAVENOUSLY
     Route: 042
     Dates: start: 20170420, end: 20170612
  2. RECOMBINATE [Suspect]
     Active Substance: ANTIHEMOPHILIC FACTOR, HUMAN RECOMBINANT
     Indication: COAGULATION FACTOR VIII LEVEL DECREASED
     Dosage: 1780 UNITS 2-3X/WEEK AND Q12H PRN INTRAVENOUSLY
     Route: 042
     Dates: start: 20170420, end: 20170612

REACTIONS (1)
  - Breath odour [None]

NARRATIVE: CASE EVENT DATE: 20170612
